FAERS Safety Report 14773853 (Version 5)
Quarter: 2020Q1

REPORT INFORMATION
  Report Type: Spontaneous
  Country: US (occurrence: US)
  Receive Date: 20180418
  Receipt Date: 20200114
  Transmission Date: 20200409
  Serious: Yes (Death, Hospitalization, Other)
  Sender: FDA-Public Use
  Company Number: US-ASTRAZENECA-2018SE46550

PATIENT
  Age: 22427 Day
  Sex: Female
  Weight: 91.6 kg

DRUGS (51)
  1. BACLOFEN. [Concomitant]
     Active Substance: BACLOFEN
     Route: 048
     Dates: start: 20180912
  2. HEPARIN [Concomitant]
     Active Substance: HEPARIN SODIUM
     Dates: start: 20180913
  3. DEXMEDETOMIDINE. [Concomitant]
     Active Substance: DEXMEDETOMIDINE
     Dates: start: 20180228
  4. NEXIUM [Suspect]
     Active Substance: ESOMEPRAZOLE MAGNESIUM
     Indication: GASTROOESOPHAGEAL REFLUX DISEASE
     Route: 048
     Dates: start: 2007, end: 2010
  5. PREVACID [Suspect]
     Active Substance: LANSOPRAZOLE
     Indication: GASTROOESOPHAGEAL REFLUX DISEASE
     Route: 065
     Dates: start: 2005, end: 2015
  6. DIAZEPAM. [Concomitant]
     Active Substance: DIAZEPAM
  7. ASPIRIN. [Concomitant]
     Active Substance: ASPIRIN
  8. NITROSTAT [Concomitant]
     Active Substance: NITROGLYCERIN
  9. ACETAMINOPHEN-HYDROCODONE [Concomitant]
     Active Substance: ACETAMINOPHEN\HYDROCODONE
     Indication: PAIN
     Route: 048
     Dates: start: 20180912
  10. NICOTINE. [Concomitant]
     Active Substance: NICOTINE
     Dates: start: 20180917
  11. PREVACID [Suspect]
     Active Substance: LANSOPRAZOLE
     Indication: GASTROOESOPHAGEAL REFLUX DISEASE
     Route: 065
     Dates: start: 2005, end: 2006
  12. LORAZEPAM. [Concomitant]
     Active Substance: LORAZEPAM
     Route: 048
     Dates: start: 20180912
  13. SALBUTAMOL [Concomitant]
     Active Substance: ALBUTEROL
     Indication: DYSPNOEA
     Dosage: ALBUTEROL
     Dates: start: 20180912
  14. NITROGLYCERIN. [Concomitant]
     Active Substance: NITROGLYCERIN
     Dates: start: 20180917
  15. HALOPERIDOL. [Concomitant]
     Active Substance: HALOPERIDOL
     Dates: start: 20180227
  16. PROPOFOL. [Concomitant]
     Active Substance: PROPOFOL
     Dates: start: 20180227
  17. SYMBICORT [Concomitant]
     Active Substance: BUDESONIDE\FORMOTEROL FUMARATE DIHYDRATE
  18. FAMOTIDINE. [Concomitant]
     Active Substance: FAMOTIDINE
     Route: 048
     Dates: start: 20180913
  19. RANITIDINE. [Concomitant]
     Active Substance: RANITIDINE
     Route: 048
     Dates: start: 20180619
  20. LORAZEPAM. [Concomitant]
     Active Substance: LORAZEPAM
     Route: 048
     Dates: start: 20180913
  21. TIOTROPIUM [Concomitant]
     Active Substance: TIOTROPIUM
     Dates: start: 20180917
  22. AZITHROMYCIN ANHYDROUS. [Concomitant]
     Active Substance: AZITHROMYCIN ANHYDROUS
     Dates: start: 20180917
  23. DIPHENDRAMINE HCL [Concomitant]
     Dates: start: 20180717
  24. LEVOFLOXACIN. [Concomitant]
     Active Substance: LEVOFLOXACIN
     Dates: start: 20180822
  25. VANCOMYCIN [Concomitant]
     Active Substance: VANCOMYCIN
     Dates: start: 20180728
  26. HYDRALAZINE [Concomitant]
     Active Substance: HYDRALAZINE HYDROCHLORIDE
     Dates: start: 20180227
  27. PREVACID [Suspect]
     Active Substance: LANSOPRAZOLE
     Indication: GASTROOESOPHAGEAL REFLUX DISEASE
     Route: 065
     Dates: start: 2011
  28. FAMOTIDINE. [Concomitant]
     Active Substance: FAMOTIDINE
     Route: 048
     Dates: start: 20180913
  29. PENTOXIFYLLINE. [Concomitant]
     Active Substance: PENTOXIFYLLINE
     Dates: start: 20180619
  30. METHADONE [Concomitant]
     Active Substance: METHADONE HYDROCHLORIDE
     Route: 048
     Dates: start: 20180831
  31. MIDAZOLAM HYDROCHLORIDE. [Concomitant]
     Active Substance: MIDAZOLAM HYDROCHLORIDE
     Dates: start: 20180228
  32. NALOXONE [Concomitant]
     Active Substance: NALOXONE
     Dates: start: 20180225
  33. NEXIUM [Suspect]
     Active Substance: ESOMEPRAZOLE MAGNESIUM
     Indication: GASTROOESOPHAGEAL REFLUX DISEASE
     Route: 048
     Dates: start: 2005, end: 20160101
  34. DEXILANT [Suspect]
     Active Substance: DEXLANSOPRAZOLE
     Indication: GASTROOESOPHAGEAL REFLUX DISEASE
     Route: 065
     Dates: start: 2005, end: 2015
  35. CEPHALEXIN. [Concomitant]
     Active Substance: CEPHALEXIN
  36. SALBUTAMOL [Concomitant]
     Active Substance: ALBUTEROL
     Indication: DYSPNOEA
     Dosage: VENTOLIN
     Route: 065
  37. PREDNISONE. [Concomitant]
     Active Substance: PREDNISONE
     Route: 048
  38. HYDROCHLOROTHIAZIDE. [Concomitant]
     Active Substance: HYDROCHLOROTHIAZIDE
     Route: 048
     Dates: start: 20180916
  39. MELOXICAM. [Concomitant]
     Active Substance: MELOXICAM
     Route: 048
     Dates: start: 20180917
  40. CEFTRIAXONE. [Concomitant]
     Active Substance: CEFTRIAXONE
     Dates: start: 20180917
  41. DOXYCYCLINE MONOHYDRATE [Concomitant]
     Active Substance: DOXYCYCLINE
     Dates: start: 20180726
  42. KAPIDEX [Suspect]
     Active Substance: DEXLANSOPRAZOLE
     Indication: GASTROOESOPHAGEAL REFLUX DISEASE
     Route: 065
     Dates: start: 2009, end: 2010
  43. LISINOPRIL. [Concomitant]
     Active Substance: LISINOPRIL
     Route: 048
     Dates: start: 20180912
  44. GABAPENTIN. [Concomitant]
     Active Substance: GABAPENTIN
     Route: 048
  45. AMLODIPINE [Concomitant]
     Active Substance: AMLODIPINE BESYLATE
     Indication: HYPERTENSION
     Route: 048
     Dates: start: 20180912
  46. CEFUROXIME. [Concomitant]
     Active Substance: CEFUROXIME
     Route: 048
     Dates: start: 20180912
  47. ESCITALOPRAM [Concomitant]
     Active Substance: ESCITALOPRAM OXALATE
     Route: 048
     Dates: start: 20180912
  48. RISPERIDONE. [Concomitant]
     Active Substance: RISPERIDONE
     Dates: start: 20180302
  49. DEXILANT [Suspect]
     Active Substance: DEXLANSOPRAZOLE
     Indication: GASTROOESOPHAGEAL REFLUX DISEASE
     Route: 065
     Dates: start: 2010, end: 2011
  50. PROMETHAZINE [Concomitant]
     Active Substance: PROMETHAZINE HYDROCHLORIDE
  51. ONDASETRON [Concomitant]
     Active Substance: ONDANSETRON
     Dates: start: 20180913

REACTIONS (5)
  - Renal failure [Unknown]
  - Chronic kidney disease [Not Recovered/Not Resolved]
  - Clostridium difficile infection [Unknown]
  - Tubulointerstitial nephritis [Unknown]
  - Acute kidney injury [Unknown]

NARRATIVE: CASE EVENT DATE: 20171126
